FAERS Safety Report 21297852 (Version 6)
Quarter: 2023Q2

REPORT INFORMATION
  Report Type: Report from Study
  Country: BR (occurrence: BR)
  Receive Date: 20220906
  Receipt Date: 20230411
  Transmission Date: 20230721
  Serious: Yes (Other)
  Sender: FDA-Public Use
  Company Number: BR-NOVARTISPH-NVSC2022BR200296

PATIENT
  Sex: Female
  Weight: 64 kg

DRUGS (17)
  1. ZOMETA [Suspect]
     Active Substance: ZOLEDRONIC ACID
     Indication: Neoplasm malignant
     Dosage: UNK, Q3MO
     Route: 065
  2. ZOMETA [Suspect]
     Active Substance: ZOLEDRONIC ACID
     Indication: Bone cancer
     Dosage: 1 DOSAGE FORM, QUARTERLY (PATIENT HAS USED ONLY ONE SO FAR)
     Route: 065
     Dates: start: 20220824
  3. ZOMETA [Suspect]
     Active Substance: ZOLEDRONIC ACID
     Dosage: UNK UNK, Q3MO
     Route: 065
     Dates: start: 20220824
  4. ZOMETA [Suspect]
     Active Substance: ZOLEDRONIC ACID
     Dosage: UNK, Q3MO
     Route: 065
     Dates: start: 202208
  5. ZOMETA [Suspect]
     Active Substance: ZOLEDRONIC ACID
     Dosage: UNK, Q3MO (ROUTE: SERUM)
     Route: 065
     Dates: start: 20221124
  6. ZOMETA [Suspect]
     Active Substance: ZOLEDRONIC ACID
     Dosage: UNK (THREE TIMES MONTHLY)
     Route: 042
     Dates: start: 2022
  7. KISQALI [Suspect]
     Active Substance: RIBOCICLIB
     Indication: Metastatic neoplasm
     Dosage: UNK
     Route: 048
     Dates: start: 20220909
  8. KISQALI [Suspect]
     Active Substance: RIBOCICLIB
     Dosage: 600 MG, QD (THREE 200 MG TABLETS A DAY FOR 21 DAYS AND A 7 DAY BREAK)
     Route: 048
  9. KISQALI [Suspect]
     Active Substance: RIBOCICLIB
     Dosage: UNK (3 TABLETS IN SINGLE DOSE PER DAY DURING 21 DAYS)
     Route: 048
     Dates: start: 20230328
  10. LETROZOLE [Suspect]
     Active Substance: LETROZOLE
     Indication: Neoplasm malignant
     Dosage: UNK, QD
     Route: 048
     Dates: start: 2022
  11. LETROZOLE [Suspect]
     Active Substance: LETROZOLE
     Indication: Breast cancer
     Dosage: 2.5 MG, QD
     Route: 048
     Dates: start: 20220823
  12. GLIFAGE [Concomitant]
     Active Substance: METFORMIN HYDROCHLORIDE
     Indication: Glucose tolerance impaired
     Dosage: 500 MG, BID
     Route: 048
  13. GLIFAGE [Concomitant]
     Active Substance: METFORMIN HYDROCHLORIDE
     Indication: Diabetes mellitus
     Dosage: UNK, TID (FOR YEARS AGO)
     Route: 048
  14. CAPTOPRIL [Concomitant]
     Active Substance: CAPTOPRIL
     Indication: Hypertension
     Dosage: 25 MG, BID
     Route: 048
  15. CAPTOPRIL [Concomitant]
     Active Substance: CAPTOPRIL
     Dosage: UNK, TID (FOR YEARS AGO)
     Route: 048
  16. HYDROCHLOROTHIAZIDE [Concomitant]
     Active Substance: HYDROCHLOROTHIAZIDE
     Indication: Hypertension
     Dosage: 25 MG, QD
     Route: 048
  17. HYDROCHLOROTHIAZIDE [Concomitant]
     Active Substance: HYDROCHLOROTHIAZIDE
     Dosage: UNK, QD (FOR YEARS AGO)
     Route: 048

REACTIONS (30)
  - Metastases to bone [Unknown]
  - Metastases to spine [Unknown]
  - Dry skin [Unknown]
  - Skin atrophy [Recovering/Resolving]
  - Pain of skin [Recovering/Resolving]
  - Blister [Unknown]
  - Ill-defined disorder [Unknown]
  - Hot flush [Recovering/Resolving]
  - Skin discolouration [Unknown]
  - Drug hypersensitivity [Unknown]
  - Erythema [Recovering/Resolving]
  - Pruritus [Recovering/Resolving]
  - Illness [Unknown]
  - Liver disorder [Unknown]
  - Pelvic pain [Unknown]
  - Pain in extremity [Not Recovered/Not Resolved]
  - Rash macular [Recovered/Resolved]
  - Cardiovascular disorder [Unknown]
  - Arthralgia [Not Recovered/Not Resolved]
  - Vision blurred [Unknown]
  - Pain [Recovering/Resolving]
  - Insomnia [Unknown]
  - Influenza [Unknown]
  - Salivary hypersecretion [Unknown]
  - Rhinitis [Unknown]
  - Sneezing [Unknown]
  - Cough [Unknown]
  - Paraesthesia [Unknown]
  - Rash macular [Unknown]
  - Bone pain [Unknown]
